FAERS Safety Report 8075313-5 (Version None)
Quarter: 2012Q1

REPORT INFORMATION
  Report Type: 
  Country: None (occurrence: None)
  Receive Date: 20120127
  Receipt Date: 20120123
  Transmission Date: 20120608
  Serious: Yes (Hospitalization, Other)
  Sender: FDA-Public Use
  Company Number: US-JNJFOC-20100806261

PATIENT
  Sex: Female

DRUGS (3)
  1. WELLBUTRIN [Concomitant]
  2. LEVAQUIN [Suspect]
     Indication: DIVERTICULITIS
     Route: 048
     Dates: start: 20061003, end: 20061013
  3. LEVAQUIN [Suspect]
     Indication: ILL-DEFINED DISORDER
     Route: 042
     Dates: start: 20060331

REACTIONS (6)
  - MUSCLE RUPTURE [None]
  - DEPRESSION [None]
  - TENDON DISORDER [None]
  - TENDON RUPTURE [None]
  - ANXIETY [None]
  - PERONEAL NERVE PALSY [None]
